FAERS Safety Report 7388133-1 (Version None)
Quarter: 2011Q2

REPORT INFORMATION
  Report Type: 
  Country: None (occurrence: None)
  Receive Date: 20110401
  Receipt Date: 20110317
  Transmission Date: 20111010
  Serious: Yes (Hospitalization)
  Sender: FDA-Public Use
  Company Number: CA-JNJFOC-20110302150

PATIENT
  Sex: Female
  Weight: 41 kg

DRUGS (6)
  1. CIPROFLOXACIN [Concomitant]
     Route: 048
  2. IMURAN [Concomitant]
     Route: 048
  3. FLAGYL [Concomitant]
     Dosage: 4 TABS/DAY
     Route: 048
  4. REMICADE [Suspect]
     Indication: CROHN'S DISEASE
     Dosage: DOSE ABOVE 400MG
     Route: 042
  5. REMICADE [Suspect]
     Route: 042
  6. PREDNISONE [Concomitant]
     Route: 048

REACTIONS (2)
  - ANAEMIA [None]
  - CROHN'S DISEASE [None]
